FAERS Safety Report 7935158-0 (Version None)
Quarter: 2011Q4

REPORT INFORMATION
  Report Type: 
  Country: None (occurrence: None)
  Receive Date: 20111122
  Receipt Date: 20111115
  Transmission Date: 20120403
  Serious: Yes (Hospitalization)
  Sender: FDA-Public Use
  Company Number: PHHY2011GB100283

PATIENT
  Age: 86 Year
  Sex: Male

DRUGS (11)
  1. ATORVASTATIN [Concomitant]
     Dosage: 10 MG, QD
  2. FLUTICASONE PROPIONATE [Concomitant]
  3. AMIODARONE HCL [Suspect]
     Indication: ATRIAL FLUTTER
     Dosage: 200 MG, TID
     Route: 048
     Dates: start: 20111021, end: 20111024
  4. DIGOXIN [Concomitant]
  5. BISOPROLOL FUMARATE [Concomitant]
     Dosage: 2.5 MG, QD
  6. FUROSEMIDE [Concomitant]
     Dosage: 40 MG, QD
  7. LISINOPRIL [Concomitant]
     Dosage: 10 MG, QD
  8. METFORMIN HCL [Concomitant]
     Dosage: 850 MG, TID
  9. ASCORBIC ACID [Concomitant]
     Dosage: 100 MG, BID
  10. TESTOSTERONE [Concomitant]
     Dosage: 8 MG, QD
  11. WARFARIN SODIUM [Concomitant]
     Dosage: 4 MG, QD

REACTIONS (8)
  - COUGH [None]
  - BALANCE DISORDER [None]
  - LUNG CONSOLIDATION [None]
  - HYPOXIA [None]
  - LOWER RESPIRATORY TRACT INFECTION [None]
  - DYSPNOEA [None]
  - WHEEZING [None]
  - PRODUCTIVE COUGH [None]
